FAERS Safety Report 14773571 (Version 6)
Quarter: 2018Q4

REPORT INFORMATION
  Report Type: Report from Study
  Country: BR (occurrence: BR)
  Receive Date: 20180418
  Receipt Date: 20181204
  Transmission Date: 20190204
  Serious: Yes (Other)
  Sender: FDA-Public Use
  Company Number: PHHY2018BR035243

PATIENT
  Age: 79 Year
  Sex: Female
  Weight: 54 kg

DRUGS (3)
  1. ACLASTA [Suspect]
     Active Substance: ZOLEDRONIC ACID
     Indication: OSTEOPENIA
     Dosage: 1 DF (5 MG/100 ML), Q12MO
     Route: 042
     Dates: start: 2018, end: 2018
  2. EUTIROX [Concomitant]
     Active Substance: LEVOTHYROXINE SODIUM
     Indication: AUTOIMMUNE THYROIDITIS
     Dosage: 1 DF, (WHILE FASTING) UNK (STARTED 15 YAERS AGO)
     Route: 048
  3. ACLASTA [Suspect]
     Active Substance: ZOLEDRONIC ACID
     Indication: OSTEOPOROSIS
     Dosage: 1 DF (5 MG/100 ML), Q12MO
     Route: 042
     Dates: start: 20170329, end: 20170329

REACTIONS (11)
  - Condition aggravated [Not Recovered/Not Resolved]
  - Body height decreased [Not Recovered/Not Resolved]
  - Hyperglycaemia [Unknown]
  - Hypercholesterolaemia [Not Recovered/Not Resolved]
  - Erythema [Unknown]
  - Purpura senile [Not Recovered/Not Resolved]
  - Skin cancer [Unknown]
  - Blood parathyroid hormone increased [Unknown]
  - Headache [Recovered/Resolved]
  - Ligament sprain [Not Recovered/Not Resolved]
  - Osteoporosis [Not Recovered/Not Resolved]

NARRATIVE: CASE EVENT DATE: 2018
